FAERS Safety Report 7743587-3 (Version None)
Quarter: 2011Q3

REPORT INFORMATION
  Report Type: 
  Country: None (occurrence: None)
  Receive Date: 20110912
  Receipt Date: 20110902
  Transmission Date: 20111222
  Serious: Yes (Other)
  Sender: FDA-Public Use
  Company Number: US-VERTEX PHARMACEUTICALS INC.-AE-2011-001187

PATIENT
  Sex: Female
  Weight: 96.248 kg

DRUGS (3)
  1. PEGINTERFERON [Concomitant]
     Indication: HEPATITIS C
     Dates: start: 20110823
  2. RIBAVIRIN [Concomitant]
     Indication: HEPATITIS C
     Dates: start: 20110823
  3. INCIVEK [Suspect]
     Indication: HEPATITIS C
     Route: 047
     Dates: start: 20110823

REACTIONS (7)
  - RASH [None]
  - URTICARIA [None]
  - PRURITUS [None]
  - PAIN IN EXTREMITY [None]
  - TONGUE DISORDER [None]
  - PYREXIA [None]
  - OEDEMA PERIPHERAL [None]
